FAERS Safety Report 8525988-9 (Version None)
Quarter: 2012Q3

REPORT INFORMATION
  Report Type: 
  Country: None (occurrence: None)
  Receive Date: 20120720
  Receipt Date: 20120706
  Transmission Date: 20120928
  Serious: Yes (Other)
  Sender: FDA-Public Use
  Company Number: CHPA2012US015136

PATIENT
  Age: 75 Year
  Sex: Female

DRUGS (5)
  1. BENEFIBER W/ WHEAT DEXTRIN [Suspect]
     Indication: CONSTIPATION
     Dosage: 1 HEAPING TABLESPOON, DAILY
     Route: 048
     Dates: start: 20070101
  2. HYDROCHLOROTHIAZIDE [Concomitant]
     Dosage: UNK, UNK
  3. CORTISONE ACETATE [Concomitant]
     Dosage: UNK, UNK
  4. CHOLESTEROL- AND TRIGLYCERIDE REDUCERS [Concomitant]
     Dosage: UNK, UNK
  5. BENEFIBER W/ WHEAT DEXTRIN [Suspect]
     Dosage: 3 STICK PACKS AT ONE TIME, AT BED TIME
     Route: 048
     Dates: start: 20070101

REACTIONS (6)
  - INCORRECT DOSE ADMINISTERED [None]
  - JOINT SWELLING [None]
  - FLATULENCE [None]
  - INSOMNIA [None]
  - OFF LABEL USE [None]
  - THERAPEUTIC RESPONSE UNEXPECTED [None]
